FAERS Safety Report 21391138 (Version 3)
Quarter: 2022Q4

REPORT INFORMATION
  Report Type: Spontaneous
  Country: US (occurrence: US)
  Receive Date: 20220929
  Receipt Date: 20221123
  Transmission Date: 20230113
  Serious: No
  Sender: FDA-Public Use
  Company Number: US-GILEAD-2022-0599405

PATIENT
  Age: 48 Year
  Sex: Male
  Weight: 63 kg

DRUGS (13)
  1. EPCLUSA [Suspect]
     Active Substance: SOFOSBUVIR\VELPATASVIR
     Indication: Chronic hepatitis C
     Dosage: 1 DOSAGE FORM
     Route: 048
     Dates: start: 20211119, end: 20220211
  2. TRAMADOL [Concomitant]
     Active Substance: TRAMADOL
  3. MORNIFLUMATE [Concomitant]
     Active Substance: MORNIFLUMATE
  4. VIAGRA [Concomitant]
     Active Substance: SILDENAFIL CITRATE
  5. PAXIL [Concomitant]
     Active Substance: PAROXETINE HYDROCHLORIDE
  6. NEURONTIN [Concomitant]
     Active Substance: GABAPENTIN
  7. FERROUS SULFATE [Concomitant]
     Active Substance: FERROUS SULFATE
  8. CEFIXIME [Concomitant]
     Active Substance: CEFIXIME
  9. COLCRYS [Concomitant]
     Active Substance: COLCHICINE
  10. KEFLEX [Concomitant]
     Active Substance: CEPHALEXIN
  11. LIPITOR [Concomitant]
     Active Substance: ATORVASTATIN CALCIUM
  12. XANAX [Concomitant]
     Active Substance: ALPRAZOLAM
  13. ABILIFY [Concomitant]
     Active Substance: ARIPIPRAZOLE

REACTIONS (3)
  - Memory impairment [Unknown]
  - Product use issue [Not Recovered/Not Resolved]
  - Drug ineffective [Not Recovered/Not Resolved]

NARRATIVE: CASE EVENT DATE: 20211119
